FAERS Safety Report 4829972-8 (Version None)
Quarter: 2005Q4

REPORT INFORMATION
  Report Type: 
  Country: None (occurrence: None)
  Receive Date: 20051114
  Receipt Date: 20051101
  Transmission Date: 20060501
  Serious: Yes (Death)
  Sender: FDA-Public Use
  Company Number: 2005152025

PATIENT

DRUGS (1)
  1. XALATAN [Suspect]
     Indication: ILL-DEFINED DISORDER

REACTIONS (1)
  - MYOCARDIAL INFARCTION [None]
